FAERS Safety Report 7607439-1 (Version None)
Quarter: 2011Q3

REPORT INFORMATION
  Report Type: 
  Country: None (occurrence: None)
  Receive Date: 20110713
  Receipt Date: 20110706
  Transmission Date: 20111222
  Serious: Yes (Hospitalization)
  Sender: FDA-Public Use
  Company Number: KR-ABBOTT-10P-090-0625100-00

PATIENT
  Age: 55 Year
  Sex: Female
  Weight: 47 kg

DRUGS (10)
  1. ACETAMINOPHEN AND TRAMADOL HCL [Concomitant]
     Indication: ARTHRITIS
     Dosage: 325MG/37.5MG
     Route: 048
     Dates: start: 20091219, end: 20100424
  2. FOLIC ACID [Concomitant]
     Indication: ADVERSE DRUG REACTION
  3. PREDNISOLONE [Concomitant]
     Indication: ARTHRITIS
     Route: 048
     Dates: start: 20090903, end: 20100424
  4. HUMIRA [Suspect]
     Indication: RHEUMATOID ARTHRITIS
     Dates: start: 20100116, end: 20100209
  5. RISEDRONATE SODIUM [Concomitant]
     Indication: OSTEOPOROSIS
     Route: 048
     Dates: start: 20090903, end: 20100428
  6. CELECOXIB [Concomitant]
     Indication: ARTHRITIS
     Route: 048
     Dates: start: 20090903, end: 20100424
  7. ZOLPIDEM TARTRATE [Concomitant]
     Indication: INSOMNIA
     Route: 048
     Dates: start: 20100112, end: 20100424
  8. FOLIC ACID [Concomitant]
     Indication: PROPHYLAXIS
     Route: 048
     Dates: start: 20090903, end: 20100424
  9. RANITIDINE HYDROCHLORIDE64MG(75MG AS RANITIDINE)BISMUTH SUBCITRATE 100 [Concomitant]
     Indication: GASTRITIS
     Route: 048
     Dates: start: 20091117, end: 20100424
  10. METHOTREXATE [Concomitant]
     Indication: ARTHRITIS
     Route: 048
     Dates: start: 20090903, end: 20100424

REACTIONS (6)
  - DECREASED APPETITE [None]
  - DIARRHOEA [None]
  - RASH [None]
  - VOMITING [None]
  - PRURITUS [None]
  - PYREXIA [None]
